FAERS Safety Report 8360321-7 (Version None)
Quarter: 2012Q1

REPORT INFORMATION
  Report Type: 
  Country: None (occurrence: None)
  Receive Date: 20120323
  Receipt Date: 20110909
  Transmission Date: 20120608
  Serious: Yes (Other)
  Sender: FDA-Public Use
  Company Number: 163-21880-11091370

PATIENT
  Age: 63 Year
  Sex: Female
  Weight: 113.3993 kg

DRUGS (12)
  1. ASPIRIN [Concomitant]
  2. COREG [Concomitant]
  3. XALATAN [Concomitant]
  4. ASCORBIC (ASCORBIC ACID) [Concomitant]
  5. CALCIUM CARBONATE [Concomitant]
  6. FOLIC (FOLIC ACID) [Concomitant]
  7. IRON (IRON) [Concomitant]
  8. NEXIUM (ESOMEPAZOLE) [Concomitant]
  9. ACETAMINOPHEN [Concomitant]
  10. REVLIMID [Suspect]
     Indication: MULTIPLE MYELOMA
     Dosage: 15 MG, QD X21 DAYS, PO; 25 MG, QD X21 DAYS, PO; 15 MG, QD X/21 DAYS, PO
     Route: 048
     Dates: start: 20100801, end: 20110101
  11. REVLIMID [Suspect]
     Indication: MULTIPLE MYELOMA
     Dosage: 15 MG, QD X21 DAYS, PO; 25 MG, QD X21 DAYS, PO; 15 MG, QD X/21 DAYS, PO
     Route: 048
     Dates: start: 20100729
  12. REVLIMID [Suspect]
     Indication: MULTIPLE MYELOMA
     Dosage: 15 MG, QD X21 DAYS, PO; 25 MG, QD X21 DAYS, PO; 15 MG, QD X/21 DAYS, PO
     Route: 048
     Dates: start: 20110801

REACTIONS (2)
  - WEIGHT INCREASED [None]
  - RENAL FAILURE [None]
